FAERS Safety Report 12405042 (Version 2)
Quarter: 2016Q2

REPORT INFORMATION
  Report Type: Spontaneous
  Country: JP (occurrence: JP)
  Receive Date: 20160525
  Receipt Date: 20160613
  Transmission Date: 20160815
  Serious: Yes (Other)
  Sender: FDA-Public Use
  Company Number: JP-009507513-1605JPN010170

PATIENT
  Sex: Male

DRUGS (1)
  1. TIENAM FOR INTRAVENOUS DRIP INFUSION (KIT) [Suspect]
     Active Substance: CILASTATIN SODIUM\IMIPENEM
     Indication: BRONCHITIS
     Dosage: DAILY DOSAGE UNKNOWN
     Route: 051
     Dates: start: 20160513

REACTIONS (1)
  - Diabetes insipidus [Unknown]

NARRATIVE: CASE EVENT DATE: 201605
